FAERS Safety Report 13323589 (Version 1)
Quarter: 2017Q1

REPORT INFORMATION
  Report Type: Spontaneous
  Country: US (occurrence: US)
  Receive Date: 20170308
  Receipt Date: 20170308
  Transmission Date: 20170428
  Serious: No
  Sender: FDA-Public Use
  Company Number: US-AMGEN-USASP2016163450

PATIENT
  Age: 81 Year
  Sex: Female

DRUGS (8)
  1. CALCIUM [Concomitant]
     Active Substance: CALCIUM
  2. PROLIA [Suspect]
     Active Substance: DENOSUMAB
     Indication: PRODUCT USED FOR UNKNOWN INDICATION
     Dosage: UNK
     Route: 065
  3. SENSIPAR [Suspect]
     Active Substance: CINACALCET HYDROCHLORIDE
     Indication: PARATHYROID DISORDER
     Dosage: 60 MG, QD
     Route: 048
     Dates: start: 20160909
  4. VALSARTAN. [Concomitant]
     Active Substance: VALSARTAN
  5. SENSIPAR [Suspect]
     Active Substance: CINACALCET HYDROCHLORIDE
     Dosage: 30 MG, QOD (IF NEEDED)
     Route: 048
     Dates: start: 20161017
  6. VALSARTAN HCTZ [Suspect]
     Active Substance: HYDROCHLOROTHIAZIDE\VALSARTAN
     Indication: HYPERTENSION
     Dosage: 80 MG, UNK
     Route: 065
  7. LOVASTATIN. [Concomitant]
     Active Substance: LOVASTATIN
     Indication: BLOOD CHOLESTEROL INCREASED
  8. VITAMIN D [Concomitant]
     Active Substance: CHOLECALCIFEROL

REACTIONS (12)
  - Nausea [Unknown]
  - Off label use [Unknown]
  - Eczema [Unknown]
  - Parathyroid disorder [Unknown]
  - Feeling abnormal [Unknown]
  - Dry mouth [Unknown]
  - Pruritus [Recovering/Resolving]
  - Muscle twitching [Unknown]
  - Malaise [Unknown]
  - Urticaria [Unknown]
  - Rash erythematous [Not Recovered/Not Resolved]
  - Dry skin [Unknown]

NARRATIVE: CASE EVENT DATE: 201607
